FAERS Safety Report 12430384 (Version 7)
Quarter: 2016Q3

REPORT INFORMATION
  Report Type: Report from Study
  Country: US (occurrence: US)
  Receive Date: 20160602
  Receipt Date: 20160819
  Transmission Date: 20161109
  Serious: Yes (Hospitalization, Other)
  Sender: FDA-Public Use
  Company Number: US-ACTELION-A-NJ2016-137046

PATIENT
  Age: 26 Year
  Sex: Female

DRUGS (1)
  1. VELETRI [Suspect]
     Active Substance: EPOPROSTENOL
     Indication: PULMONARY ARTERIAL HYPERTENSION
     Dosage: 14 NG/KG, PER MIN
     Route: 042
     Dates: start: 20160421

REACTIONS (33)
  - Catheter site pain [Unknown]
  - Catheter site erythema [Unknown]
  - Ear infection [Unknown]
  - Diarrhoea [Unknown]
  - Loss of consciousness [Unknown]
  - Catheter site scar [Unknown]
  - Pain of skin [Unknown]
  - Blister [Unknown]
  - Headache [Unknown]
  - Application site rash [Unknown]
  - Catheter site vesicles [Unknown]
  - Application site reaction [Unknown]
  - Pharyngitis streptococcal [Unknown]
  - Pain in extremity [Unknown]
  - Erythema [Unknown]
  - Premature labour [Unknown]
  - Delivery [Unknown]
  - Skin reaction [Unknown]
  - Dyspnoea exertional [Unknown]
  - Flushing [Unknown]
  - Rash [Unknown]
  - Dehydration [Unknown]
  - Uterine contractions during pregnancy [Unknown]
  - Joint swelling [Unknown]
  - Nausea [Unknown]
  - Dyspnoea [Unknown]
  - Exposure during pregnancy [Unknown]
  - Thrombosis [Unknown]
  - Dermatitis contact [Unknown]
  - Palpitations [Unknown]
  - Insomnia [Unknown]
  - Abdominal pain upper [Unknown]
  - Catheter site infection [Unknown]

NARRATIVE: CASE EVENT DATE: 20160518
